FAERS Safety Report 14751686 (Version 1)
Quarter: 2018Q2

REPORT INFORMATION
  Report Type: Spontaneous
  Country: US (occurrence: US)
  Receive Date: 20180412
  Receipt Date: 20180412
  Transmission Date: 20180711
  Serious: Yes (Hospitalization, Disabling, Other)
  Sender: FDA-Public Use
  Company Number: US-WEST-WARD PHARMACEUTICALS CORP.-US-H14001-18-02730

PATIENT
  Age: 36 Year
  Sex: Male

DRUGS (3)
  1. FENTANYL. [Suspect]
     Active Substance: FENTANYL
     Indication: PAIN
     Route: 037
     Dates: start: 2010
  2. FENTANYL. [Suspect]
     Active Substance: FENTANYL
     Route: 042
  3. BUPIVACAINE. [Suspect]
     Active Substance: BUPIVACAINE
     Indication: PAIN
     Route: 037
     Dates: start: 2010

REACTIONS (2)
  - Spinal cord compression [Recovering/Resolving]
  - Catheter site mass [Recovered/Resolved]

NARRATIVE: CASE EVENT DATE: 201508
